FAERS Safety Report 5569497-8 (Version None)
Quarter: 2007Q4

REPORT INFORMATION
  Report Type: 
  Country: None (occurrence: None)
  Receive Date: 20071220
  Receipt Date: 20071219
  Transmission Date: 20080405
  Serious: Yes (Hospitalization)
  Sender: FDA-Public Use
  Company Number: FR-WYE-H01827007

PATIENT
  Sex: Male

DRUGS (5)
  1. INIPOMP [Suspect]
     Dosage: 20 MG (FREQUENCY UNSPECIFIED)
     Route: 048
     Dates: start: 20071008, end: 20071015
  2. EXTRANASE [Concomitant]
     Dosage: ^DF^
     Dates: start: 20070925
  3. PROPRANOLOL [Concomitant]
     Dosage: ^DF^
     Dates: start: 20070925
  4. PREVISCAN [Suspect]
     Indication: PROPHYLAXIS
     Dosage: 20 MG (FREQUENCY UNSPECIFIED)
     Route: 048
     Dates: start: 20071008, end: 20071015
  5. RIVOTRIL [Concomitant]
     Dosage: ^DF^
     Dates: start: 20070925

REACTIONS (1)
  - NEUTROPENIA [None]
